FAERS Safety Report 6183683-8 (Version None)
Quarter: 2009Q2

REPORT INFORMATION
  Report Type: 
  Country: None (occurrence: None)
  Receive Date: 20090506
  Receipt Date: 20090427
  Transmission Date: 20091009
  Serious: Yes (Other)
  Sender: FDA-Public Use
  Company Number: CHNY2009JP01843

PATIENT
  Sex: Male

DRUGS (1)
  1. NICOTINELL TTS (NICOTINE) TRANS-THERAPEUTIC-SYSTEM [Suspect]
     Indication: SMOKING CESSATION THERAPY
     Dosage: 7 MG, QD, TRANSDERMAL
     Route: 062
     Dates: end: 20090426

REACTIONS (1)
  - PNEUMONIA [None]
